FAERS Safety Report 16161957 (Version 1)
Quarter: 2019Q2

REPORT INFORMATION
  Report Type: Spontaneous
  Country: GB (occurrence: GB)
  Receive Date: 20190405
  Receipt Date: 20190405
  Transmission Date: 20190711
  Serious: Yes (Hospitalization)
  Sender: FDA-Public Use
  Company Number: GB-CPL-000961

PATIENT
  Age: 83 Year
  Sex: Female

DRUGS (8)
  1. GLYCEROL [Concomitant]
     Active Substance: GLYCERIN
     Dosage: INSERTED.
  2. GABAPENTIN. [Concomitant]
     Active Substance: GABAPENTIN
  3. DONEPEZIL. [Suspect]
     Active Substance: DONEPEZIL
     Indication: DEMENTIA ALZHEIMER^S TYPE
     Route: 048
     Dates: start: 20190204, end: 20190227
  4. SIMVASTATIN. [Concomitant]
     Active Substance: SIMVASTATIN
     Dosage: AT NIGHT.
  5. THYROXINE [Concomitant]
     Active Substance: LEVOTHYROXINE
  6. MEBEVERINE [Concomitant]
     Active Substance: MEBEVERINE
  7. OMEPRAZOLE. [Concomitant]
     Active Substance: OMEPRAZOLE
  8. PARACETAMOL [Concomitant]
     Active Substance: ACETAMINOPHEN
     Dosage: 1G FOUR TIMES DAILY AS NEEDED.

REACTIONS (3)
  - Agitation [Unknown]
  - Confusional state [Recovering/Resolving]
  - Aggression [Unknown]

NARRATIVE: CASE EVENT DATE: 20190204
